FAERS Safety Report 17125895 (Version 2)
Quarter: 2021Q3

REPORT INFORMATION
  Report Type: Spontaneous
  Country: AU (occurrence: AU)
  Receive Date: 20191208
  Receipt Date: 20210930
  Transmission Date: 20211014
  Serious: Yes (Other)
  Sender: FDA-Public Use
  Company Number: AU-AMGEN-AUSSP2019201046

PATIENT
  Age: 39 Year
  Sex: Female

DRUGS (1)
  1. PROLIA [Suspect]
     Active Substance: DENOSUMAB
     Indication: OSTEOPOROSIS
     Dosage: UNK UNK, Q6MO
     Route: 065
     Dates: start: 2014, end: 2018

REACTIONS (4)
  - Overweight [Unknown]
  - Atypical femur fracture [Recovering/Resolving]
  - Fall [Unknown]
  - Hypophosphatasia [Unknown]

NARRATIVE: CASE EVENT DATE: 2018
